FAERS Safety Report 8451229-7 (Version None)
Quarter: 2012Q2

REPORT INFORMATION
  Report Type: 
  Country: None (occurrence: None)
  Receive Date: 20120620
  Receipt Date: 20120228
  Transmission Date: 20120825
  Serious: No
  Sender: FDA-Public Use
  Company Number: US-VERTEX PHARMACEUTICALS INC.-AE-2012-000898

PATIENT
  Sex: Male
  Weight: 95.34 kg

DRUGS (9)
  1. INCIVEK [Suspect]
     Indication: HEPATITIS C
     Route: 048
     Dates: start: 20111015, end: 20120112
  2. AMBIEN [Concomitant]
  3. RIBASPHERE [Concomitant]
     Indication: HEPATITIS C
     Route: 048
     Dates: start: 20111015
  4. PEGASYS [Concomitant]
     Indication: HEPATITIS C
     Route: 058
     Dates: start: 20111015
  5. LANTUS [Concomitant]
  6. BENADRYL [Concomitant]
  7. ZOLPIDEM [Concomitant]
  8. ATIVAN [Concomitant]
  9. NOVOLOG [Concomitant]

REACTIONS (1)
  - RASH PRURITIC [None]
